FAERS Safety Report 23718175 (Version 1)
Quarter: 2024Q2

REPORT INFORMATION
  Report Type: Spontaneous
  Country: CN (occurrence: CN)
  Receive Date: 20240408
  Receipt Date: 20240408
  Transmission Date: 20240716
  Serious: Yes (Hospitalization)
  Sender: FDA-Public Use
  Company Number: CN-DSJP-DSJ-2024-114929

PATIENT
  Age: 88 Year
  Sex: Male

DRUGS (2)
  1. EDOXABAN [Suspect]
     Active Substance: EDOXABAN
     Indication: Atrial flutter
     Dosage: 30 MG, QD
     Route: 048
     Dates: start: 20240306, end: 20240323
  2. CEFOPERAZONE SODIUM\SULBACTAM SODIUM [Suspect]
     Active Substance: CEFOPERAZONE SODIUM\SULBACTAM SODIUM
     Indication: Atrial flutter
     Dosage: UNK
     Route: 065
     Dates: end: 2024

REACTIONS (2)
  - Coagulopathy [Recovering/Resolving]
  - Haematuria [Unknown]

NARRATIVE: CASE EVENT DATE: 20240301
